FAERS Safety Report 10048513 (Version 3)
Quarter: 2014Q2

REPORT INFORMATION
  Report Type: Spontaneous
  Country: JP (occurrence: JP)
  Receive Date: 20140331
  Receipt Date: 20140418
  Transmission Date: 20141212
  Serious: Yes (Hospitalization, Other)
  Sender: FDA-Public Use
  Company Number: PHHY2013JP056750

PATIENT
  Sex: Female
  Weight: 50 kg

DRUGS (4)
  1. NEORAL [Suspect]
     Indication: NEPHROTIC SYNDROME
     Dosage: 75 MG, QD
     Route: 048
     Dates: start: 20121203
  2. PREDONINE [Suspect]
     Dosage: 10 MG, UNK
     Route: 048
     Dates: start: 2004
  3. PREDNISOLONE [Concomitant]
     Dosage: 12.5 MG, UNK
     Route: 048
     Dates: start: 20130617
  4. MAGLAX [Concomitant]
     Dosage: 990 MG, UNK
     Route: 048
     Dates: start: 20130708

REACTIONS (10)
  - Premature rupture of membranes [Unknown]
  - Amniotic fluid volume decreased [Unknown]
  - Amniorrhoea [Unknown]
  - Haemorrhage in pregnancy [Unknown]
  - Abortion threatened [Recovered/Resolved]
  - Cervical polyp [Unknown]
  - Amniotic cavity infection [Unknown]
  - Funisitis [Unknown]
  - Premature labour [Unknown]
  - Maternal exposure during pregnancy [Unknown]
